FAERS Safety Report 13502197 (Version 1)
Quarter: 2017Q2

REPORT INFORMATION
  Report Type: Spontaneous
  Country: FR (occurrence: FR)
  Receive Date: 20170502
  Receipt Date: 20170502
  Transmission Date: 20170830
  Serious: Yes (Hospitalization)
  Sender: FDA-Public Use
  Company Number: FR-ACCORD-050833

PATIENT
  Age: 58 Year
  Sex: Male

DRUGS (15)
  1. CISPLATIN ACCORD [Suspect]
     Active Substance: CISPLATIN
     Indication: EPIGLOTTIC CARCINOMA
     Dosage: STRENGTH: 1 MG/ML
     Route: 042
     Dates: start: 20170215, end: 20170314
  2. PERINDOPRIL/PERINDOPRIL ERBUMINE [Concomitant]
  3. FLAMMAZINE [Concomitant]
     Active Substance: SILVER SULFADIAZINE
     Dosage: ONE APPLICATION ONCE DAILY
  4. METHYLPREDNISOLONE. [Concomitant]
     Active Substance: METHYLPREDNISOLONE
     Indication: PREMEDICATION
     Route: 042
  5. LAROXYL [Concomitant]
     Active Substance: AMITRIPTYLINE
     Dosage: IN THE EVENING
  6. ONDANSETRON [Concomitant]
     Active Substance: ONDANSETRON
     Indication: PREMEDICATION
     Route: 042
  7. UVEDOSE [Concomitant]
     Active Substance: CHOLECALCIFEROL
     Dosage: STRENGTH: 100000 UI
  8. FENTANYL. [Concomitant]
     Active Substance: FENTANYL
  9. CRESTOR [Concomitant]
     Active Substance: ROSUVASTATIN CALCIUM
     Dosage: IN THE EVENING
  10. PANTOPRAZOLE [Concomitant]
     Active Substance: PANTOPRAZOLE
     Dosage: IN THE MORNING
  11. EZETIMIBE. [Concomitant]
     Active Substance: EZETIMIBE
     Dosage: IN THE MORNING
  12. THERALENE [Concomitant]
     Active Substance: TRIMEPRAZINE
     Dosage: AT BED TIME
  13. OXYNORMORO [Concomitant]
     Active Substance: OXYCODONE
     Dosage: IF NEEDED
  14. OSMOTAN [Concomitant]
     Active Substance: DEXTROSE\POTASSIUM CHLORIDE\SODIUM CHLORIDE
     Indication: FLUID REPLACEMENT
  15. NEBIVOLOL. [Concomitant]
     Active Substance: NEBIVOLOL
     Dosage: STRENGTH: 5 MG , DAILY IN THE MORNING

REACTIONS (3)
  - Acute kidney injury [Recovered/Resolved]
  - Hepatocellular injury [Recovered/Resolved]
  - Cholestasis [Recovering/Resolving]

NARRATIVE: CASE EVENT DATE: 20170323
